FAERS Safety Report 16458938 (Version 1)
Quarter: 2019Q2

REPORT INFORMATION
  Report Type: Spontaneous
  Country: US (occurrence: US)
  Receive Date: 20190620
  Receipt Date: 20190620
  Transmission Date: 20190711
  Serious: No
  Sender: FDA-Public Use
  Company Number: US-THERAPEUTICSMD-2019TMD00867

PATIENT
  Sex: Female
  Weight: 64.85 kg

DRUGS (5)
  1. IMVEXXY [Suspect]
     Active Substance: ESTRADIOL
     Indication: FEMALE SEXUAL DYSFUNCTION
     Dosage: 10 ?G ONCE/WEEK + TWICE/WEEK ALTERNATING WITH 4 ?G BOTH BEFORE BED AND WHILE UPRIGHT AND/OR ACTIVE
     Route: 067
     Dates: start: 2018, end: 201904
  2. IMVEXXY [Suspect]
     Active Substance: ESTRADIOL
     Indication: FEMALE SEXUAL DYSFUNCTION
     Dosage: 4 ?G ONCE/WEEK + TWICE/WEEK ALTERNATING WITH 10 ?G BOTH BEFORE BED AND WHILE UPRIGHT AND/OR ACTIVE
     Route: 067
     Dates: start: 2018, end: 201904
  3. IMVEXXY [Suspect]
     Active Substance: ESTRADIOL
     Dosage: 8 ?G, ONE TIME
     Route: 067
  4. MULTIVITAMIN [Concomitant]
     Active Substance: VITAMINS
  5. SYNTHROID [Concomitant]
     Active Substance: LEVOTHYROXINE SODIUM

REACTIONS (5)
  - Drug ineffective for unapproved indication [Recovered/Resolved]
  - Intentional product misuse [Recovered/Resolved]
  - Off label use [Recovered/Resolved]
  - Pruritus [Recovered/Resolved]
  - Product residue present [Recovered/Resolved]

NARRATIVE: CASE EVENT DATE: 2018
